FAERS Safety Report 5273507-5 (Version None)
Quarter: 2007Q1

REPORT INFORMATION
  Report Type: 
  Country: None (occurrence: None)
  Receive Date: 20070321
  Receipt Date: 20070321
  Transmission Date: 20070707
  Serious: Yes (Other)
  Sender: FDA-Public Use
  Company Number: None

PATIENT
  Age: 40 Year
  Sex: Female
  Weight: 52.1637 kg

DRUGS (2)
  1. ENJUVIA [Suspect]
     Indication: HORMONE REPLACEMENT THERAPY
     Dosage: ONE TABLET DAILY  (WE SENT PRODUCT ON 1-17-07)
  2. TOPROL-XL [Concomitant]

REACTIONS (2)
  - MIGRAINE [None]
  - PHARMACEUTICAL PRODUCT COMPLAINT [None]
